FAERS Safety Report 8127738-7 (Version None)
Quarter: 2011Q4

REPORT INFORMATION
  Report Type: 
  Country: None (occurrence: None)
  Receive Date: 20111230
  Receipt Date: 20110303
  Transmission Date: 20120403
  Serious: Yes (Other)
  Sender: FDA-Public Use
  Company Number: 269800USA

PATIENT
  Sex: Female

DRUGS (1)
  1. DIAZEPAM [Suspect]
     Dosage: (10 MG),RECTAL
     Route: 054

REACTIONS (3)
  - CONVULSION [None]
  - HYPERSOMNIA [None]
  - TREMOR [None]
